FAERS Safety Report 5743522-3 (Version None)
Quarter: 2008Q2

REPORT INFORMATION
  Report Type: 
  Country: None (occurrence: None)
  Receive Date: 20080519
  Receipt Date: 20080519
  Transmission Date: 20081010
  Serious: Yes (Other)
  Sender: FDA-Public Use
  Company Number: None

PATIENT
  Sex: Male
  Weight: 27.2158 kg

DRUGS (1)
  1. DIGOXIN 0.125MG LANNETT / CAREMARK [Suspect]
     Indication: HEART DISEASE CONGENITAL
     Dosage: 1/2 TABLET TWICE DAILY PO
     Route: 048
     Dates: start: 20031021, end: 20080518

REACTIONS (5)
  - CHEST PAIN [None]
  - GASTROOESOPHAGEAL REFLUX DISEASE [None]
  - NAUSEA [None]
  - PHARMACEUTICAL PRODUCT COMPLAINT [None]
  - THERAPEUTIC AGENT TOXICITY [None]
